FAERS Safety Report 5934483-2 (Version None)
Quarter: 2008Q4

REPORT INFORMATION
  Report Type: 
  Country: None (occurrence: None)
  Receive Date: 20081027
  Receipt Date: 20081010
  Transmission Date: 20090506
  Serious: Yes (Life-Threatening, Hospitalization)
  Sender: FDA-Public Use
  Company Number: 8036418

PATIENT
  Age: 59 Year
  Sex: Male

DRUGS (5)
  1. LORTAB [Suspect]
     Indication: PAIN
     Dosage: 10 MG PRN PO
     Route: 048
     Dates: start: 20050101, end: 20080711
  2. NEVAXAR [Suspect]
     Indication: RENAL CELL CARCINOMA
     Dosage: 400 MG 2/D PO
     Route: 048
     Dates: start: 20080617
  3. REMERON [Concomitant]
  4. TAGAMET [Concomitant]
  5. NORVASC [Concomitant]

REACTIONS (9)
  - ALANINE AMINOTRANSFERASE INCREASED [None]
  - ASPARTATE AMINOTRANSFERASE INCREASED [None]
  - BLOOD CALCIUM DECREASED [None]
  - BLOOD GLUCOSE INCREASED [None]
  - BLOOD MAGNESIUM DECREASED [None]
  - BLOOD TRIGLYCERIDES INCREASED [None]
  - COGNITIVE DISORDER [None]
  - CONFUSIONAL STATE [None]
  - OVERDOSE [None]
